FAERS Safety Report 10076432 (Version 6)
Quarter: 2014Q4

REPORT INFORMATION
  Report Type: Report from Study
  Country: US (occurrence: US)
  Receive Date: 20140414
  Receipt Date: 20141104
  Transmission Date: 20150528
  Serious: Yes (Hospitalization)
  Sender: FDA-Public Use
  Company Number: US-SA-2014SA028013

PATIENT
  Age: 55 Year
  Sex: Female

DRUGS (1)
  1. AUBAGIO [Suspect]
     Active Substance: TERIFLUNOMIDE
     Indication: MULTIPLE SCLEROSIS
     Route: 048
     Dates: start: 20140215, end: 20140304

REACTIONS (11)
  - Nausea [Unknown]
  - Muscle spasticity [Unknown]
  - Multiple sclerosis relapse [Unknown]
  - Mobility decreased [Unknown]
  - Drug dose omission [Unknown]
  - Blood pressure increased [Unknown]
  - Hypersomnia [Unknown]
  - Fatigue [Unknown]
  - Headache [Unknown]
  - Wrong technique in drug usage process [Unknown]
  - Urinary tract infection [Unknown]
